FAERS Safety Report 5531306-0 (Version None)
Quarter: 2007Q4

REPORT INFORMATION
  Report Type: 
  Country: None (occurrence: None)
  Receive Date: 20071128
  Receipt Date: 20071115
  Transmission Date: 20080405
  Serious: Yes (Death, Hospitalization)
  Sender: FDA-Public Use
  Company Number: 2007-01719

PATIENT
  Age: 66 Year

DRUGS (8)
  1. VELCADE [Suspect]
     Indication: MULTIPLE MYELOMA
  2. ADRIAMYCIN RDF [Suspect]
     Indication: MULTIPLE MYELOMA
  3. DEXAMETHASONE [Suspect]
     Indication: MULTIPLE MYELOMA
  4. NORVASC [Concomitant]
  5. NEURONTIN [Concomitant]
  6. PALLADONE [Concomitant]
  7. PASPERTIN (METOCLOPRAMIDE HYDROCHLORIDE) [Concomitant]
  8. ACYCLOVIR [Concomitant]

REACTIONS (2)
  - PNEUMONIA [None]
  - SEPTIC SHOCK [None]
